FAERS Safety Report 4417078-1 (Version None)
Quarter: 2004Q2

REPORT INFORMATION
  Report Type: 
  Country: None (occurrence: None)
  Receive Date: 20040629
  Receipt Date: 20031211
  Transmission Date: 20050107
  Serious: No
  Sender: FDA-Public Use
  Company Number: US060314

PATIENT
  Sex: Female

DRUGS (4)
  1. ARANESP [Suspect]
     Indication: ANAEMIA
     Dosage: 140 MCG, EVERY 2 WEEKS, SC
     Route: 058
     Dates: start: 20030501
  2. PROCRIT [Suspect]
     Indication: ANAEMIA
  3. FUROSEMIDE [Concomitant]
  4. ENALAPRIL MALEATE [Concomitant]

REACTIONS (2)
  - DIARRHOEA [None]
  - SWELLING FACE [None]
